FAERS Safety Report 4570615-9 (Version None)
Quarter: 2005Q1

REPORT INFORMATION
  Report Type: 
  Country: None (occurrence: None)
  Receive Date: 20050204
  Receipt Date: 20050126
  Transmission Date: 20050727
  Serious: Yes (Life-Threatening, Disabling, Other)
  Sender: FDA-Public Use
  Company Number: GB-GLAXOSMITHKLINE-B0369208A

PATIENT
  Age: 82 Year
  Sex: Female
  Weight: 68 kg

DRUGS (7)
  1. LAMOTRIGINE [Suspect]
     Indication: EPILEPSY
     Dosage: 300MG PER DAY
     Route: 065
     Dates: start: 20031010
  2. PRAMIPEXOLE [Suspect]
     Indication: PARKINSON'S DISEASE
     Dosage: 88MCG PER DAY
     Route: 048
     Dates: start: 20041231, end: 20050107
  3. PERINDOPRIL [Concomitant]
     Indication: CEREBROVASCULAR DISORDER
     Dosage: 2MG PER DAY
     Route: 065
  4. NICORANDIL [Concomitant]
     Dosage: 5MG TWICE PER DAY
     Route: 065
  5. SINEMET [Concomitant]
     Indication: PARKINSON'S DISEASE
     Dosage: 125MG THREE TIMES PER DAY
     Route: 065
  6. CLOPIDOGREL [Concomitant]
     Dosage: 75MG PER DAY
     Route: 065
  7. LANSOPRAZOLE [Concomitant]
     Indication: DYSPEPSIA
     Dosage: 30MG PER DAY
     Route: 065

REACTIONS (2)
  - CONVULSION [None]
  - DRUG INTERACTION [None]
